FAERS Safety Report 9962854 (Version 2)
Quarter: 2014Q1

REPORT INFORMATION
  Report Type: Report from Study
  Country: PR (occurrence: PR)
  Receive Date: 20140305
  Receipt Date: 20140305
  Transmission Date: 20141002
  Serious: No
  Sender: FDA-Public Use
  Company Number: PR-ABBVIE-12P-131-0908665-00

PATIENT
  Sex: Female
  Weight: 68.55 kg

DRUGS (6)
  1. HUMIRA [Suspect]
     Indication: RHEUMATOID ARTHRITIS
     Route: 058
     Dates: start: 201108, end: 201202
  2. LYRICA [Concomitant]
     Indication: FIBROMYALGIA
     Route: 048
  3. METHOTREXATE [Concomitant]
     Indication: RHEUMATOID ARTHRITIS
     Route: 048
  4. ALBUTEROL [Concomitant]
     Indication: ASTHMA
     Route: 048
  5. FOLIC ACID [Concomitant]
     Indication: SUPPLEMENTATION THERAPY
     Route: 048
  6. NORTRIPTYLINE [Concomitant]
     Indication: MAJOR DEPRESSION
     Route: 048

REACTIONS (1)
  - Drug ineffective [Recovered/Resolved]
